FAERS Safety Report 8822402 (Version 1)
Quarter: 2012Q4

REPORT INFORMATION
  Report Type: 
  Country: MT (occurrence: MT)
  Receive Date: 20121003
  Receipt Date: 20121003
  Transmission Date: 20130627
  Serious: Yes (Other)
  Sender: FDA-Public Use
  Company Number: MT-RANBAXY-2012R1-60539

PATIENT
  Age: 80 Year
  Sex: Male

DRUGS (2)
  1. SIMVASTATIN [Suspect]
     Indication: PRODUCT USED FOR UNKNOWN INDICATION
     Dosage: UNK
     Route: 065
     Dates: start: 200906
  2. FLUVASTATIN [Suspect]
     Indication: PRODUCT USED FOR UNKNOWN INDICATION
     Dosage: UNK
     Route: 065
     Dates: start: 200909

REACTIONS (1)
  - Cough [Recovered/Resolved]
